FAERS Safety Report 8716484 (Version 2)
Quarter: 2012Q4

REPORT INFORMATION
  Report Type: 
  Country: US (occurrence: US)
  Receive Date: 20120810
  Receipt Date: 20121031
  Transmission Date: 20130627
  Serious: Yes (Other)
  Sender: FDA-Public Use
  Company Number: US-009507513-1208USA001890

PATIENT
  Age: 36 Year
  Sex: Female

DRUGS (1)
  1. NUVARING [Suspect]
     Dosage: 0.120 mg/day of etonogestrel and 0.015 mg/day of ethinylestradiol/21 days
     Route: 067
     Dates: start: 2010

REACTIONS (1)
  - Cerebrovascular accident [Unknown]
